FAERS Safety Report 21120899 (Version 1)
Quarter: 2022Q3

REPORT INFORMATION
  Report Type: Spontaneous
  Country: US (occurrence: US)
  Receive Date: 20220722
  Receipt Date: 20220722
  Transmission Date: 20221027
  Serious: No
  Sender: FDA-Public Use
  Company Number: US-BAYER-2022A101255

PATIENT
  Age: 68 Year
  Sex: Male

DRUGS (1)
  1. ADEMPAS [Suspect]
     Active Substance: RIOCIGUAT
     Dosage: 1.5 MG
     Dates: start: 20220415

REACTIONS (3)
  - Gait inability [Recovering/Resolving]
  - Somnolence [Not Recovered/Not Resolved]
  - Head titubation [Recovering/Resolving]

NARRATIVE: CASE EVENT DATE: 20220716
